FAERS Safety Report 8573756-4 (Version None)
Quarter: 2012Q3

REPORT INFORMATION
  Report Type: 
  Country: None (occurrence: None)
  Receive Date: 20120806
  Receipt Date: 20120724
  Transmission Date: 20120928
  Serious: Yes (Other)
  Sender: FDA-Public Use
  Company Number: GB-GLAXOSMITHKLINE-B0804933A

PATIENT
  Sex: Female

DRUGS (9)
  1. SIMVASTATIN [Concomitant]
     Dosage: 20MG PER DAY
     Route: 048
  2. BENDROFLUMETHIAZIDE [Concomitant]
     Dosage: 2.5MG PER DAY
     Route: 048
  3. DOXAZOSIN MESYLATE [Concomitant]
     Dosage: 2MG PER DAY
     Route: 048
  4. MONTELUKAST [Concomitant]
     Dosage: 10MG PER DAY
     Route: 048
  5. UNIVER [Concomitant]
     Dosage: 240MG PER DAY
     Route: 048
  6. VENTOLIN [Suspect]
     Indication: PRODUCT USED FOR UNKNOWN INDICATION
     Dosage: 200MCG AS REQUIRED
     Route: 055
  7. OMEPRAZOLE [Concomitant]
     Dosage: 20MG PER DAY
     Route: 048
  8. LISINOPRIL [Concomitant]
     Dosage: 20MG TWICE PER DAY
     Route: 048
  9. GABAPENTIN [Concomitant]
     Dosage: 300MG PER DAY
     Route: 048

REACTIONS (3)
  - DEVICE ISSUE [None]
  - CHOKING [None]
  - PRODUCT QUALITY ISSUE [None]
